FAERS Safety Report 9279189 (Version 2)
Quarter: 2013Q3

REPORT INFORMATION
  Report Type: Spontaneous
  Country: US (occurrence: None)
  Receive Date: 20120926
  Receipt Date: 20130815
  Transmission Date: 20140515
  Serious: Yes (Other)
  Sender: FDA-Public Use
  Company Number: ADR-2012-01696

PATIENT
  Sex: Male

DRUGS (2)
  1. LIORESAL INTRATHECAL (BACLOFEN INJECTION) [Suspect]
     Indication: MUSCLE SPASTICITY
  2. LIORESAL INTRATHECAL (BACLOFEN INJECTION) [Suspect]

REACTIONS (12)
  - Hypersensitivity [None]
  - Dermatitis contact [None]
  - Implant site infection [None]
  - Device allergy [None]
  - Implant site erosion [None]
  - Skin swelling [None]
  - Implant site inflammation [None]
  - Implant site fibrosis [None]
  - Hypersensitivity [None]
  - Implant site mass [None]
  - Infusion site fibrosis [None]
  - Skin maceration [None]
